FAERS Safety Report 21820614 (Version 1)
Quarter: 2023Q1

REPORT INFORMATION
  Report Type: Other
  Country: None (occurrence: US)
  Receive Date: 20230105
  Receipt Date: 20230105
  Transmission Date: 20230417
  Serious: Yes (Hospitalization)
  Sender: FDA-Public Use
  Company Number: US-OrBion Pharmaceuticals Private Limited-2136432

PATIENT
  Age: 50 Year
  Sex: Female

DRUGS (1)
  1. LEVOFLOXACIN [Suspect]
     Active Substance: LEVOFLOXACIN
     Route: 048

REACTIONS (11)
  - Lacunar stroke [Recovering/Resolving]
  - Respiratory rate increased [Recovered/Resolved]
  - Blood lactic acid increased [Recovered/Resolved]
  - Blood pH increased [Recovered/Resolved]
  - Creatinine renal clearance decreased [Recovered/Resolved]
  - Tendon disorder [Recovered/Resolved]
  - Anxiety [Recovered/Resolved]
  - Nausea [Recovered/Resolved]
  - Flushing [Recovered/Resolved]
  - Dizziness [Recovered/Resolved]
  - Accidental overdose [Recovered/Resolved]
